FAERS Safety Report 5489098-X (Version None)
Quarter: 2007Q4

REPORT INFORMATION
  Report Type: 
  Country: None (occurrence: None)
  Receive Date: 20071005
  Receipt Date: 20070723
  Transmission Date: 20080405
  Serious: Yes (Life-Threatening, Hospitalization)
  Sender: FDA-Public Use
  Company Number: PHEH2007US10136

PATIENT
  Age: 67 Year
  Sex: Female
  Weight: 52.2 kg

DRUGS (5)
  1. TEKTURNA [Suspect]
     Indication: HYPERTENSION
     Dosage: 150 MG, QD, ORAL
     Route: 048
     Dates: start: 20070614, end: 20070627
  2. DIOVAN HCT [Suspect]
     Indication: HYPERTENSION
     Dosage: 160/25 QD, ORAL
     Route: 048
  3. CHANTIX [Concomitant]
  4. ACIPHEX [Concomitant]
  5. CRESTOR [Concomitant]

REACTIONS (1)
  - HYPOTENSION [None]
